FAERS Safety Report 19585447 (Version 1)
Quarter: 2021Q3

REPORT INFORMATION
  Report Type: Report from Study
  Country: None (occurrence: US)
  Receive Date: 20210721
  Receipt Date: 20210721
  Transmission Date: 20211014
  Serious: Yes (Hospitalization, Other)
  Sender: FDA-Public Use
  Company Number: US-ABBVIE-21K-163-3989825-00

PATIENT
  Age: 78 Year
  Sex: Female
  Weight: 54.48 kg

DRUGS (1)
  1. HUMIRA [Suspect]
     Active Substance: ADALIMUMAB
     Indication: CROHN^S DISEASE
     Dosage: CITRATE FREE
     Route: 058
     Dates: start: 2020, end: 202103

REACTIONS (7)
  - Cerebrovascular accident [Recovered/Resolved]
  - Intestinal perforation [Recovered/Resolved]
  - Gastrointestinal pain [Recovered/Resolved]
  - Hypertension [Unknown]
  - Memory impairment [Recovered/Resolved]
  - Thrombosis [Unknown]
  - Gastrointestinal infection [Recovered/Resolved]

NARRATIVE: CASE EVENT DATE: 20210319
